FAERS Safety Report 7321987-3 (Version None)
Quarter: 2011Q1

REPORT INFORMATION
  Report Type: 
  Country: None (occurrence: None)
  Receive Date: 20110228
  Receipt Date: 20110224
  Transmission Date: 20110831
  Serious: Yes (Death, Hospitalization, Other)
  Sender: FDA-Public Use
  Company Number: US-B.I. PHARMACEUTICALS,INC./RIDGEFIELD-2011-BP-05108BP

PATIENT
  Sex: Male

DRUGS (14)
  1. MEGACE [Concomitant]
     Dosage: 400 MG
  2. COUMADIN [Concomitant]
     Dosage: 5 MG
  3. ZOFRAN [Concomitant]
     Indication: NAUSEA
     Route: 042
  4. THROAT LOZENGES [Concomitant]
  5. REMERON [Concomitant]
  6. CLONIDINE [Concomitant]
  7. CELEXA [Concomitant]
     Dosage: 400 MG
  8. PRADAXA [Suspect]
     Indication: ATRIAL FIBRILLATION
     Dosage: 300 MG
     Route: 048
     Dates: start: 20101119
  9. AMBIEN [Concomitant]
  10. PROCRIT [Concomitant]
     Indication: ANAEMIA
  11. DILANTIN [Concomitant]
  12. REGLAN [Concomitant]
     Indication: NAUSEA
  13. REGLAN [Concomitant]
     Indication: REGURGITATION
  14. DUONEB [Concomitant]
     Indication: WHEEZING

REACTIONS (6)
  - HAEMATEMESIS [None]
  - BLADDER MASS [None]
  - RENAL FAILURE [None]
  - PAROTITIS [None]
  - SUPERIOR MESENTERIC ARTERY SYNDROME [None]
  - OBSTRUCTION GASTRIC [None]
